FAERS Safety Report 25210859 (Version 1)
Quarter: 2025Q2

REPORT INFORMATION
  Report Type: Spontaneous
  Country: US (occurrence: US)
  Receive Date: 20250417
  Receipt Date: 20250417
  Transmission Date: 20250717
  Serious: No
  Sender: PFIZER
  Company Number: US-PFIZER INC-202500077824

PATIENT
  Age: 45 Year
  Sex: Female

DRUGS (6)
  1. XELJANZ XR [Suspect]
     Active Substance: TOFACITINIB CITRATE
     Dosage: 11MG TABLET (30^S) TAKE 1 TABLET BY MOUTH EVERY DAY
     Route: 048
  2. METHOTREXATE [Suspect]
     Active Substance: METHOTREXATE
  3. LISINOPRIL [Concomitant]
     Active Substance: LISINOPRIL
  4. FOLIC ACID [Concomitant]
     Active Substance: FOLIC ACID
  5. NUVARING [Concomitant]
     Active Substance: ETHINYL ESTRADIOL\ETONOGESTREL
     Route: 067
  6. MOUNJARO [Concomitant]
     Active Substance: TIRZEPATIDE
     Indication: Weight decreased

REACTIONS (2)
  - Therapeutic product effect decreased [Unknown]
  - Glucose tolerance impaired [Unknown]
